FAERS Safety Report 23485332 (Version 1)
Quarter: 2024Q1

REPORT INFORMATION
  Report Type: Spontaneous
  Country: US (occurrence: US)
  Receive Date: 20240206
  Receipt Date: 20240206
  Transmission Date: 20240409
  Serious: No
  Sender: FDA-Public Use
  Company Number: US-SA-SAC20240125001654

PATIENT
  Age: 13 Year
  Sex: Male

DRUGS (2)
  1. DUPIXENT [Suspect]
     Active Substance: DUPILUMAB
     Indication: Dermatitis atopic
     Dosage: 300 MG, QOW
     Route: 058
  2. DUPIXENT [Suspect]
     Active Substance: DUPILUMAB
     Dosage: UNK UNK, Q3W
     Route: 058

REACTIONS (5)
  - Dry skin [Not Recovered/Not Resolved]
  - Abdominal discomfort [Unknown]
  - Skin exfoliation [Not Recovered/Not Resolved]
  - Injection site reaction [Unknown]
  - Inappropriate schedule of product administration [Unknown]
